FAERS Safety Report 9300067 (Version 1)
Quarter: 2013Q1

REPORT INFORMATION
  Report Type: Spontaneous
  Country: US (occurrence: None)
  Receive Date: 20130107
  Receipt Date: 20130107
  Transmission Date: 20140127
  Serious: No
  Sender: FDA-Public Use
  Company Number: PHEH2012US022009

PATIENT
  Age: 20 Year
  Sex: Female
  Weight: 64.9 kg

DRUGS (3)
  1. GILENYA (FINGOLIMOD) CAPSULE, 0.5MG [Suspect]
     Indication: MULTIPLE SCLEROSIS
     Route: 048
     Dates: start: 20110906
  2. ALEVE (NAPROXEN SODIUM) [Concomitant]
  3. TYLENOL (PARACETAMOL) [Concomitant]

REACTIONS (5)
  - Fatigue [None]
  - Hypoaesthesia [None]
  - Pain in extremity [None]
  - Headache [None]
  - Multiple sclerosis relapse [None]
